FAERS Safety Report 22631316 (Version 4)
Quarter: 2023Q4

REPORT INFORMATION
  Report Type: Report from Study
  Country: DO (occurrence: DO)
  Receive Date: 20230623
  Receipt Date: 20231016
  Transmission Date: 20240109
  Serious: Yes (Other)
  Sender: FDA-Public Use
  Company Number: DO-JNJFOC-20230639885

PATIENT
  Age: 62 Year
  Sex: Male

DRUGS (1)
  1. IMBRUVICA [Suspect]
     Active Substance: IBRUTINIB
     Indication: Chronic lymphocytic leukaemia
     Dosage: 1 TABLET
     Route: 048
     Dates: start: 20220301

REACTIONS (5)
  - Glaucoma [Unknown]
  - Insomnia [Unknown]
  - Hypersensitivity [Unknown]
  - Drug ineffective [Unknown]
  - Pityriasis [Unknown]

NARRATIVE: CASE EVENT DATE: 20230501
